FAERS Safety Report 8851696 (Version 3)
Quarter: 2013Q3

REPORT INFORMATION
  Report Type: Spontaneous
  Country: US (occurrence: None)
  Receive Date: 20121017
  Receipt Date: 20130815
  Transmission Date: 20140515
  Serious: Yes (Hospitalization, Other)
  Sender: FDA-Public Use
  Company Number: ADR-2012-01683

PATIENT
  Sex: Male

DRUGS (2)
  1. LIORESAL [Suspect]
     Indication: MUSCLE SPASTICITY
  2. LIORESAL [Suspect]
     Indication: CEREBRAL PALSY

REACTIONS (7)
  - Drug withdrawal syndrome [None]
  - Device kink [None]
  - Cough [None]
  - Protrusion tongue [None]
  - Salivary hypersecretion [None]
  - Musculoskeletal stiffness [None]
  - Musculoskeletal stiffness [None]
